FAERS Safety Report 21993238 (Version 1)
Quarter: 2023Q1

REPORT INFORMATION
  Report Type: Spontaneous
  Country: GR (occurrence: GR)
  Receive Date: 20230215
  Receipt Date: 20230215
  Transmission Date: 20230418
  Serious: Yes (Hospitalization)
  Sender: FDA-Public Use
  Company Number: GR-JNJFOC-20230220780

PATIENT
  Age: 41 Year
  Sex: Female
  Weight: 88 kg

DRUGS (2)
  1. REMICADE [Suspect]
     Active Substance: INFLIXIMAB
     Indication: Colitis ulcerative
     Route: 041
     Dates: start: 20180620, end: 20221017
  2. INFLIXIMAB [Suspect]
     Active Substance: INFLIXIMAB
     Indication: Colitis ulcerative
     Route: 065

REACTIONS (4)
  - Anal haemorrhage [Recovered/Resolved]
  - Headache [Unknown]
  - Therapeutic product effect decreased [Unknown]
  - Off label use [Unknown]
